FAERS Safety Report 5502359-0 (Version None)
Quarter: 2007Q4

REPORT INFORMATION
  Report Type: 
  Country: None (occurrence: None)
  Receive Date: 20071030
  Receipt Date: 20071018
  Transmission Date: 20080405
  Serious: Yes (Disabling, Other)
  Sender: FDA-Public Use
  Company Number: CA-PFIZER INC-2007077267

PATIENT
  Sex: Female
  Weight: 56.7 kg

DRUGS (6)
  1. LIPITOR [Suspect]
     Indication: BLOOD CHOLESTEROL INCREASED
     Route: 048
     Dates: start: 20070312, end: 20070415
  2. LIPITOR [Suspect]
     Indication: HYPERCHOLESTEROLAEMIA
  3. NEXIUM [Concomitant]
     Indication: GASTROOESOPHAGEAL REFLUX DISEASE
     Dosage: DAILY DOSE:40MG-FREQ:DAILY
  4. NEXIUM [Concomitant]
     Indication: ABDOMINAL PAIN UPPER
  5. NEXIUM [Concomitant]
  6. ASPIRIN [Concomitant]
     Indication: FAMILIAL RISK FACTOR
     Dosage: DAILY DOSE:81MG-FREQ:DAILY

REACTIONS (6)
  - ARTHRALGIA [None]
  - DIABETES MELLITUS [None]
  - MUSCULOSKELETAL STIFFNESS [None]
  - MYALGIA [None]
  - PAIN IN EXTREMITY [None]
  - RENAL PAIN [None]
